FAERS Safety Report 26028132 (Version 2)
Quarter: 2025Q4

REPORT INFORMATION
  Report Type: Spontaneous
  Country: EU (occurrence: EU)
  Receive Date: 20251111
  Receipt Date: 20251202
  Transmission Date: 20260117
  Serious: Yes (Death, Hospitalization)
  Sender: IMMUNOCORE
  Company Number: EU-IMMUNOCORE, LTD.-2025-IMC-004876

PATIENT

DRUGS (10)
  1. KIMMTRAK [Suspect]
     Active Substance: TEBENTAFUSP-TEBN
     Indication: Metastatic ocular melanoma
     Dosage: 20 MICROGRAM
     Route: 042
     Dates: start: 20250730
  2. ESOMEPRAZOLE [Concomitant]
     Active Substance: ESOMEPRAZOLE
     Indication: Product used for unknown indication
     Dosage: 40 MILLIGRAM, QD
     Route: 065
  3. LEVOTHYROXINE SODIUM\LIOTHYRONINE SODIUM [Concomitant]
     Active Substance: LEVOTHYROXINE SODIUM\LIOTHYRONINE SODIUM
     Indication: Product used for unknown indication
     Dosage: 50; 1/2 TABLETS
     Route: 065
  4. RISEDRONATE SODIUM [Concomitant]
     Active Substance: RISEDRONATE SODIUM
     Indication: Product used for unknown indication
     Dosage: 35 MILLIGRAM; 1/WEEKLY
     Route: 065
  5. CHOLECALCIFEROL [Concomitant]
     Active Substance: CHOLECALCIFEROL
     Indication: Product used for unknown indication
     Dosage: 50000 INTERNATIONAL UNIT PER 2 ML; 1 AMP MONTHLY
     Route: 065
  6. LUMIGAN [Concomitant]
     Active Substance: BIMATOPROST
     Indication: Product used for unknown indication
     Dosage: 0,1
  7. BRINZOLAMIDE [Concomitant]
     Active Substance: BRINZOLAMIDE
     Indication: Product used for unknown indication
  8. ACETAMINOPHEN [Concomitant]
     Active Substance: ACETAMINOPHEN
     Indication: Pain
     Dosage: UNK
     Route: 065
  9. CIPROFLOXACIN [Concomitant]
     Active Substance: CIPROFLOXACIN
     Indication: Product used for unknown indication
     Dosage: UNK
     Route: 065
  10. ALVERINE CITRATE\DIMETHICONE [Concomitant]
     Active Substance: ALVERINE CITRATE\DIMETHICONE
     Indication: Abdominal pain
     Dosage: UNK, TID

REACTIONS (16)
  - Malignant neoplasm progression [Fatal]
  - General physical health deterioration [Fatal]
  - Septic shock [Unknown]
  - Blood lactic acid increased [Unknown]
  - C-reactive protein increased [Unknown]
  - Tachypnoea [Unknown]
  - Gamma-glutamyltransferase increased [Unknown]
  - White blood cell count increased [Unknown]
  - Cytokine release syndrome [Recovered/Resolved with Sequelae]
  - Alanine aminotransferase increased [Unknown]
  - Blood alkaline phosphatase increased [Unknown]
  - Aspartate aminotransferase increased [Unknown]
  - Haemoglobin decreased [Unknown]
  - Tachycardia [Unknown]
  - Hypotension [Unknown]
  - Pyrexia [Unknown]

NARRATIVE: CASE EVENT DATE: 20250730
